FAERS Safety Report 19858598 (Version 1)
Quarter: 2021Q3

REPORT INFORMATION
  Report Type: Spontaneous
  Country: CA (occurrence: CA)
  Receive Date: 20210921
  Receipt Date: 20210921
  Transmission Date: 20211014
  Serious: Yes (Other)
  Sender: FDA-Public Use
  Company Number: CA-ACCORD-239187

PATIENT
  Age: 38 Year
  Sex: Male
  Weight: 90 kg

DRUGS (2)
  1. PYRANTEL [Interacting]
     Active Substance: PYRANTEL
     Indication: ENTEROBIASIS
     Route: 048
  2. QUETIAPINE. [Suspect]
     Active Substance: QUETIAPINE
     Indication: PRODUCT USED FOR UNKNOWN INDICATION
     Dosage: 1 EVERY 1 DAYS

REACTIONS (7)
  - Haematochezia [Recovered/Resolved]
  - Bowel movement irregularity [Recovered/Resolved]
  - Depression [Recovered/Resolved]
  - Mucous stools [Recovered/Resolved]
  - Decreased appetite [Recovered/Resolved]
  - Drug interaction [Unknown]
  - Overdose [Unknown]
